FAERS Safety Report 10947604 (Version 2)
Quarter: 2015Q2

REPORT INFORMATION
  Report Type: Other
  Country: GB (occurrence: GB)
  Receive Date: 20150323
  Receipt Date: 20150427
  Transmission Date: 20150821
  Serious: Yes (Other)
  Sender: FDA-Public Use
  Company Number: GB-MYLANLABS-2015M1007764

PATIENT

DRUGS (16)
  1. ROPINIROLE. [Suspect]
     Active Substance: ROPINIROLE
     Dosage: 24 MILLIGRAM DAILY; MODIFIED RELEASE
     Route: 065
     Dates: start: 200909
  2. AMANTADINE [Suspect]
     Active Substance: AMANTADINE
     Dosage: 200 MILLIGRAM DAILY;
     Route: 065
     Dates: start: 200811
  3. ORPHENADRINE [Suspect]
     Active Substance: ORPHENADRINE
     Dosage: 150 MILLIGRAM DAILY;
     Route: 065
     Dates: start: 201007
  4. AMANTADINE [Suspect]
     Active Substance: AMANTADINE
     Dosage: UNK
     Route: 065
     Dates: start: 2002, end: 2007
  5. PRAMIPEXOLE [Suspect]
     Active Substance: PRAMIPEXOLE
     Dosage: UNK
     Route: 065
     Dates: start: 2002, end: 2007
  6. CO-CARELDOPA [Suspect]
     Active Substance: CARBIDOPA\LEVODOPA
     Dosage: 750 MILLIGRAM DAILY;
     Route: 065
     Dates: start: 200909, end: 201007
  7. BENSERAZIDE [Suspect]
     Active Substance: BENSERAZIDE
     Dosage: UNK
     Route: 065
     Dates: start: 2002, end: 2007
  8. ROPINIROLE. [Suspect]
     Active Substance: ROPINIROLE
     Indication: PRODUCT USED FOR UNKNOWN INDICATION
     Dosage: UNK
     Route: 065
     Dates: start: 2002, end: 2007
  9. APOMORPHINE [Suspect]
     Active Substance: APOMORPHINE
     Dosage: UNK
     Route: 058
     Dates: start: 2007, end: 2007
  10. ROTIGOTINE [Concomitant]
     Active Substance: ROTIGOTINE
     Dosage: UNK
     Route: 065
     Dates: start: 2007
  11. LEVODOPA [Suspect]
     Active Substance: LEVODOPA
     Dosage: UNK
     Route: 065
     Dates: start: 2002, end: 2007
  12. AMANTADINE [Suspect]
     Active Substance: AMANTADINE
     Dosage: 100 MILLIGRAM DAILY;
     Route: 065
     Dates: start: 201007
  13. CO-CARELDOPA [Suspect]
     Active Substance: CARBIDOPA\LEVODOPA
     Dosage: 5 TIMES IN A DAY
     Route: 065
     Dates: start: 2000, end: 200909
  14. ENTACAPONE. [Suspect]
     Active Substance: ENTACAPONE
     Dosage: UNK
     Route: 065
     Dates: start: 2002, end: 200909
  15. CO-CARELDOPA [Suspect]
     Active Substance: CARBIDOPA\LEVODOPA
     Dosage: 62.5 MG, UNK
     Route: 065
     Dates: start: 201007
  16. SELEGILINE [Suspect]
     Active Substance: SELEGILINE
     Dosage: 10 MG, QD
     Route: 065
     Dates: start: 1995

REACTIONS (15)
  - Muscular weakness [Unknown]
  - Recall phenomenon [Recovering/Resolving]
  - Facial paresis [Unknown]
  - Memory impairment [Recovering/Resolving]
  - Headache [Recovered/Resolved]
  - Depression [Recovering/Resolving]
  - Decreased appetite [Recovered/Resolved]
  - Hyperhidrosis [Recovered/Resolved]
  - Haemorrhage [Recovered/Resolved]
  - Skin mass [Recovered/Resolved]
  - Transient ischaemic attack [Unknown]
  - Dyskinesia [Recovered/Resolved]
  - Feeling abnormal [Unknown]
  - Tremor [Recovered/Resolved]
  - Balance disorder [Unknown]

NARRATIVE: CASE EVENT DATE: 2002
